FAERS Safety Report 14367249 (Version 1)
Quarter: 2018Q1

REPORT INFORMATION
  Report Type: Spontaneous
  Country: US (occurrence: US)
  Receive Date: 20180109
  Receipt Date: 20180109
  Transmission Date: 20180509
  Serious: No
  Sender: FDA-Public Use
  Company Number: US-JNJFOC-20171227035

PATIENT
  Age: 10 Year
  Sex: Female
  Weight: 45.36 kg

DRUGS (2)
  1. CHILDRENS MOTRIN [Suspect]
     Active Substance: IBUPROFEN
     Indication: PYREXIA
     Dosage: 4OZ
     Route: 048
     Dates: start: 20171218
  2. CHILDRENS MOTRIN [Suspect]
     Active Substance: IBUPROFEN
     Indication: ACCIDENTAL EXPOSURE TO PRODUCT
     Dosage: 4OZ
     Route: 048
     Dates: start: 20171218

REACTIONS (3)
  - Incorrect dose administered [Unknown]
  - Accidental exposure to product by child [Unknown]
  - Device malfunction [Unknown]

NARRATIVE: CASE EVENT DATE: 20171218
